FAERS Safety Report 8290195-4 (Version None)
Quarter: 2012Q1

REPORT INFORMATION
  Report Type: 
  Country: None (occurrence: None)
  Receive Date: 20120316
  Receipt Date: 20090219
  Transmission Date: 20120608
  Serious: Yes (Other)
  Sender: FDA-Public Use
  Company Number: PHEH2009US01899

PATIENT
  Age: 74 Year
  Sex: Female

DRUGS (12)
  1. TEKTURNA [Suspect]
     Dosage: 300 MG, QD
  2. DIURETICS (NO INGREDIENTS/SUBSTANCES) [Concomitant]
  3. ACETAMINOPHEN [Concomitant]
  4. ASPIRIN [Concomitant]
  5. LEXAPRO [Concomitant]
  6. CELEBREX [Concomitant]
  7. LASIX [Concomitant]
  8. LISINOPRIL [Concomitant]
  9. COREG [Concomitant]
  10. CHLORDIAZEPOXIDE (NO INGREDIENTS/SUBSTANCES) [Concomitant]
  11. VISTARIL [Concomitant]
  12. RANEXA [Concomitant]

REACTIONS (2)
  - OEDEMA PERIPHERAL [None]
  - PAIN [None]
